FAERS Safety Report 13861176 (Version 1)
Quarter: 2017Q3

REPORT INFORMATION
  Report Type: Spontaneous
  Country: US (occurrence: US)
  Receive Date: 20170811
  Receipt Date: 20170811
  Transmission Date: 20171127
  Serious: Yes (Death, Other)
  Sender: FDA-Public Use
  Company Number: US-PFIZER INC-2017344141

PATIENT
  Age: 64 Year
  Sex: Female
  Weight: 74.9 kg

DRUGS (2)
  1. NORMAL SALINE [Concomitant]
     Active Substance: SODIUM CHLORIDE
     Dosage: UNK
  2. VANCOMYCIN HCL [Suspect]
     Active Substance: VANCOMYCIN HYDROCHLORIDE
     Indication: EAR INFECTION
     Dosage: 1 G, TIMES 5 TREATMENTS
     Route: 042
     Dates: start: 20170714

REACTIONS (4)
  - Dyspnoea [Fatal]
  - Medication error [Fatal]
  - Unresponsive to stimuli [Fatal]
  - Drug hypersensitivity [Fatal]

NARRATIVE: CASE EVENT DATE: 20170714
